FAERS Safety Report 5071559-9 (Version None)
Quarter: 2006Q3

REPORT INFORMATION
  Report Type: 
  Country: None (occurrence: None)
  Receive Date: 20060803
  Receipt Date: 20060803
  Transmission Date: 20061208
  Serious: Yes (Hospitalization)
  Sender: FDA-Public Use
  Company Number: None

PATIENT
  Age: 58 Year
  Sex: Male
  Weight: 93 kg

DRUGS (3)
  1. NAPROXEN [Suspect]
     Indication: PAIN
     Dosage: 2 TABLETS PO Q4H PRN PAIN
     Route: 048
  2. KETOROLAC 30 MG [Suspect]
     Indication: PROCEDURAL PAIN
     Dosage: 30 MG IM Q6H
     Route: 030
     Dates: start: 20060420, end: 20060422
  3. ASPIRIN [Suspect]
     Indication: CORONARY ARTERY DISEASE
     Dosage: 81 MG PO DAILY
     Route: 048

REACTIONS (5)
  - GASTRIC DISORDER [None]
  - HAEMATEMESIS [None]
  - HAEMATOCRIT DECREASED [None]
  - HAEMOGLOBIN DECREASED [None]
  - POST PROCEDURAL COMPLICATION [None]
